FAERS Safety Report 10208560 (Version 1)
Quarter: 2014Q2

REPORT INFORMATION
  Report Type: Report from Study
  Country: FR (occurrence: FR)
  Receive Date: 20140530
  Receipt Date: 20140530
  Transmission Date: 20141212
  Serious: Yes (Hospitalization)
  Sender: FDA-Public Use
  Company Number: FR-JNJFOC-20140510300

PATIENT
  Age: 77 Year
  Sex: Male
  Weight: 105 kg

DRUGS (7)
  1. ABIRATERONE ACETATE [Suspect]
     Indication: PROSTATE CANCER
     Route: 048
     Dates: start: 20140304, end: 20140430
  2. PREDNISONE [Concomitant]
     Route: 065
  3. PRETERAX [Concomitant]
     Route: 065
  4. OMEPRAZOLE [Concomitant]
     Route: 065
  5. STRUCTUM [Concomitant]
     Route: 065
  6. DIACEREIN [Concomitant]
     Route: 065
  7. EBASTINE [Concomitant]
     Route: 065

REACTIONS (6)
  - Hypokalaemia [Recovered/Resolved]
  - Diarrhoea [Recovered/Resolved]
  - Fall [Unknown]
  - Muscular weakness [Unknown]
  - Asthenia [Unknown]
  - Arthralgia [Unknown]
